FAERS Safety Report 21889436 (Version 23)
Quarter: 2023Q2

REPORT INFORMATION
  Report Type: Report from Study
  Country: MX (occurrence: None)
  Receive Date: 20230120
  Receipt Date: 20230629
  Transmission Date: 20230721
  Serious: Yes (Life-Threatening, Hospitalization)
  Sender: FDA-Public Use
  Company Number: MX-Eisai Medical Research-EC-2023-132298

PATIENT
  Age: 78 Year
  Sex: Male
  Weight: 47 kg

DRUGS (10)
  1. LENVATINIB [Suspect]
     Active Substance: LENVATINIB
     Indication: Hepatocellular carcinoma
     Dosage: STARTING DOSE AT 8 MG FLUCTUATED DOSAGE
     Route: 048
     Dates: start: 20200106, end: 20230113
  2. PEMBROLIZUMAB [Suspect]
     Active Substance: PEMBROLIZUMAB
     Indication: Hepatocellular carcinoma
     Route: 041
     Dates: start: 20200106, end: 20211218
  3. NIFEDIPINE [Concomitant]
     Active Substance: NIFEDIPINE
     Dates: start: 20221215, end: 20230102
  4. NEBIVOLOL [Concomitant]
     Active Substance: NEBIVOLOL
     Dates: start: 20221222, end: 20230118
  5. FUROSEMIDE [Concomitant]
     Active Substance: FUROSEMIDE
     Dates: start: 20230103, end: 20230107
  6. ENALAPRIL [Concomitant]
     Active Substance: ENALAPRIL
     Dates: start: 20230103, end: 20230118
  7. LEVOTHYROXINE SODIUM [Concomitant]
     Active Substance: LEVOTHYROXINE SODIUM
     Dates: start: 20221106
  8. IPRATROPIUM BROMIDE [Concomitant]
     Active Substance: IPRATROPIUM BROMIDE\IPRATROPIUM BROMIDE ANHYDROUS
     Dates: start: 20201118, end: 20230315
  9. BUDESONIDE [Concomitant]
     Active Substance: BUDESONIDE
     Dates: start: 20201118, end: 20230315
  10. FORMOTEROL FUMARATE [Concomitant]
     Active Substance: FORMOTEROL FUMARATE
     Dates: start: 20201118, end: 20230315

REACTIONS (3)
  - Hypertensive emergency [Recovered/Resolved]
  - Dyspnoea [Recovered/Resolved]
  - Pneumonia [Recovered/Resolved]

NARRATIVE: CASE EVENT DATE: 20230114
